FAERS Safety Report 24137601 (Version 1)
Quarter: 2024Q3

REPORT INFORMATION
  Report Type: Spontaneous
  Country: CZ (occurrence: CZ)
  Receive Date: 20240725
  Receipt Date: 20240725
  Transmission Date: 20241017
  Serious: Yes (Other)
  Sender: SANDOZ
  Company Number: CZ-SUN PHARMACEUTICAL INDUSTRIES LTD-2024RR-457400

PATIENT
  Age: 51 Year
  Sex: Female

DRUGS (3)
  1. ALENDRONIC ACID [Suspect]
     Active Substance: ALENDRONIC ACID
     Indication: Osteoporosis postmenopausal
     Dosage: UNK
     Route: 065
     Dates: start: 2007, end: 2009
  2. METHOTREXATE [Suspect]
     Active Substance: METHOTREXATE
     Indication: Rheumatic disorder
     Dosage: UNK
     Route: 065
     Dates: start: 2008, end: 2009
  3. TERIPARATIDE [Suspect]
     Active Substance: TERIPARATIDE
     Indication: Osteoporosis
     Dosage: UNK
     Route: 065
     Dates: start: 2016

REACTIONS (5)
  - Treatment noncompliance [Unknown]
  - Gastrointestinal tract irritation [Unknown]
  - Herpes virus infection [Unknown]
  - Nausea [Unknown]
  - Drug ineffective [Unknown]
